FAERS Safety Report 23669675 (Version 2)
Quarter: 2024Q2

REPORT INFORMATION
  Report Type: Spontaneous
  Country: US (occurrence: US)
  Receive Date: 20240325
  Receipt Date: 20240408
  Transmission Date: 20240715
  Serious: No
  Sender: FDA-Public Use
  Company Number: US-PFIZER INC-202400069842

PATIENT
  Age: 81 Year
  Sex: Female
  Weight: 98.413 kg

DRUGS (7)
  1. TIKOSYN [Suspect]
     Active Substance: DOFETILIDE
     Indication: Cardiac disorder
     Dosage: 125 MG, 2X/DAY
     Dates: start: 202210
  2. TIKOSYN [Suspect]
     Active Substance: DOFETILIDE
     Indication: Atrial fibrillation
  3. TIKOSYN [Suspect]
     Active Substance: DOFETILIDE
     Indication: Cardiac failure congestive
  4. METOPROLOL [Concomitant]
     Active Substance: METOPROLOL
     Dosage: 25 MG, 2X/DAY
     Dates: start: 202203
  5. ELIQUIS [Concomitant]
     Active Substance: APIXABAN
     Indication: Anticoagulant therapy
     Dosage: 5 MG, 2X/DAY
  6. FUROSEMIDE [Concomitant]
     Active Substance: FUROSEMIDE
     Dosage: 20 MG, 2X/DAY
  7. JARDIANCE [Concomitant]
     Active Substance: EMPAGLIFLOZIN
     Dosage: 5 MG, 1X/DAY

REACTIONS (2)
  - Off label use [Unknown]
  - Drug effective for unapproved indication [Unknown]
